FAERS Safety Report 6037694-3 (Version None)
Quarter: 2009Q1

REPORT INFORMATION
  Report Type: 
  Country: None (occurrence: None)
  Receive Date: 20090114
  Receipt Date: 20090107
  Transmission Date: 20090719
  Serious: Yes (Hospitalization)
  Sender: FDA-Public Use
  Company Number: PT-AMGEN-UK321287

PATIENT
  Sex: Male
  Weight: 85 kg

DRUGS (21)
  1. NEULASTA [Suspect]
     Indication: NEUTROPENIA
     Route: 058
     Dates: start: 20080802, end: 20080912
  2. BLEOMYCIN SULFATE [Concomitant]
     Route: 065
     Dates: start: 20080731, end: 20080911
  3. DACARBAZINE [Concomitant]
     Route: 065
     Dates: start: 20080731, end: 20080911
  4. DOXORUBICIN HYDROCHLORIDE [Concomitant]
     Route: 065
     Dates: start: 20080731, end: 20080911
  5. VINBLASTINE SULFATE [Concomitant]
     Route: 065
     Dates: start: 20080731, end: 20080911
  6. CHLORAMBUCIL [Concomitant]
     Route: 065
  7. PREDNISONE TAB [Concomitant]
     Route: 065
  8. PROCARBAZINE [Concomitant]
     Route: 065
  9. OMEPRAZOLE [Concomitant]
     Route: 065
  10. MYCOSTATIN [Concomitant]
     Route: 065
  11. ALLOPURINOL [Concomitant]
     Route: 065
  12. FOLIC ACID [Concomitant]
     Route: 065
  13. LEVOFLOXACIN [Concomitant]
     Route: 065
  14. IRON [Concomitant]
     Route: 065
  15. ACTRAPID HUMAN [Concomitant]
     Dates: start: 20080926
  16. CLARITHROMYCIN [Concomitant]
     Route: 065
     Dates: start: 20081012
  17. ESOMEPRAZOLE [Concomitant]
     Route: 065
     Dates: start: 20081012
  18. ISONIAZID [Concomitant]
     Route: 065
     Dates: start: 20081024
  19. ETHAMBUTOL HCL [Concomitant]
     Route: 065
     Dates: start: 20081024
  20. CHLORAMBUCIL [Concomitant]
     Route: 065
     Dates: start: 20081024
  21. PROCARBAZINE [Concomitant]
     Route: 065
     Dates: start: 20081127

REACTIONS (2)
  - DRUG INEFFECTIVE [None]
  - FEBRILE NEUTROPENIA [None]
